FAERS Safety Report 7149594 (Version 2)
Quarter: 2013Q1

REPORT INFORMATION
  Report Type: Spontaneous
  Country: TR (occurrence: None)
  Receive Date: 20091001
  Receipt Date: 20130123
  Transmission Date: 20140127
  Serious: Yes (Hospitalization)
  Sender: FDA-Public Use
  Company Number: AUR-APL-2009-00684

PATIENT
  Age: 21 Year
  Sex: Male

DRUGS (3)
  1. FLUOXETINE (FLUOXETINE) [Suspect]
     Indication: DEPRESSIVE SYMPTOM
     Dosage: 10MG - DAILY -
  2. ACITRETIN [Suspect]
     Indication: PRODUCT USED FOR UNKNOWN INDICATION
     Dosage: 200MG - DAILY -
  3. CICLOSPORIN (CICLOSPORIN) [Suspect]
     Indication: PRODUCT USED FOR UNKNOWN INDICATION
     Dosage: 35MG - DAILY -

REACTIONS (6)
  - Drug interaction [None]
  - Condition aggravated [None]
  - No therapeutic response [None]
  - Pustular psoriasis [None]
  - Depressive symptom [None]
  - Erythrodermic psoriasis [None]
